FAERS Safety Report 24164997 (Version 1)
Quarter: 2024Q3

REPORT INFORMATION
  Report Type: Spontaneous
  Country: IN (occurrence: IN)
  Receive Date: 20240802
  Receipt Date: 20240802
  Transmission Date: 20241016
  Serious: Yes (Death)
  Sender: Steriscience PTE
  Company Number: IN-STERISCIENCE B.V.-2024-ST-001119

PATIENT
  Age: 11 Year
  Sex: Male

DRUGS (25)
  1. MYCOPHENOLATE MOFETIL [Suspect]
     Active Substance: MYCOPHENOLATE MOFETIL
     Indication: Prophylaxis against graft versus host disease
     Dosage: UNK
     Route: 065
  2. CYCLOPHOSPHAMIDE [Suspect]
     Active Substance: CYCLOPHOSPHAMIDE
     Indication: B-cell type acute leukaemia
     Dosage: 2 CYCLES
     Route: 065
  3. CYCLOPHOSPHAMIDE [Suspect]
     Active Substance: CYCLOPHOSPHAMIDE
     Indication: Prophylaxis against graft versus host disease
     Route: 065
  4. TACROLIMUS [Suspect]
     Active Substance: TACROLIMUS
     Indication: Prophylaxis against graft versus host disease
     Dosage: UNK
     Route: 065
  5. VINCRISTINE [Concomitant]
     Active Substance: VINCRISTINE
     Indication: B-cell type acute leukaemia
     Dosage: 2 CYCLES
     Route: 065
  6. VINCRISTINE [Concomitant]
     Active Substance: VINCRISTINE
     Indication: TP53 gene mutation
  7. DOXORUBICIN [Concomitant]
     Active Substance: DOXORUBICIN
     Indication: B-cell type acute leukaemia
     Dosage: 2 CYCLES
     Route: 065
  8. DOXORUBICIN [Concomitant]
     Active Substance: DOXORUBICIN
     Indication: TP53 gene mutation
  9. METHOTREXATE [Concomitant]
     Active Substance: METHOTREXATE
     Indication: B-cell type acute leukaemia
     Dosage: UNK
     Route: 065
  10. METHOTREXATE [Concomitant]
     Active Substance: METHOTREXATE
     Indication: TP53 gene mutation
  11. CYTARABINE [Concomitant]
     Active Substance: CYTARABINE
     Indication: B-cell type acute leukaemia
     Dosage: UNK
     Route: 065
  12. CYTARABINE [Concomitant]
     Active Substance: CYTARABINE
     Indication: TP53 gene mutation
  13. DEXAMETHASONE [Concomitant]
     Active Substance: DEXAMETHASONE
     Indication: B-cell type acute leukaemia
     Dosage: 2 CYCLES
     Route: 065
  14. DEXAMETHASONE [Concomitant]
     Active Substance: DEXAMETHASONE
     Indication: TP53 gene mutation
     Dosage: DAYS 1, 8, 15, AND 22
     Route: 065
  15. VENETOCLAX [Concomitant]
     Active Substance: VENETOCLAX
     Indication: B-cell type acute leukaemia
     Dosage: DAYS 1-7
     Route: 065
  16. VENETOCLAX [Concomitant]
     Active Substance: VENETOCLAX
     Indication: TP53 gene mutation
  17. BORTEZOMIB [Concomitant]
     Active Substance: BORTEZOMIB
     Indication: B-cell type acute leukaemia
     Dosage: DAYS 1, 4, 8 AND 11
     Route: 065
  18. BORTEZOMIB [Concomitant]
     Active Substance: BORTEZOMIB
     Indication: TP53 gene mutation
  19. INOTUZUMAB OZOGAMICIN [Concomitant]
     Active Substance: INOTUZUMAB OZOGAMICIN
     Indication: B-cell type acute leukaemia
     Dosage: ON DAY 1; DAYS 1, 8, AND 15
     Route: 065
  20. INOTUZUMAB OZOGAMICIN [Concomitant]
     Active Substance: INOTUZUMAB OZOGAMICIN
     Indication: TP53 gene mutation
     Dosage: ON DAYS 8 AND 15; DAYS 1, 8, AND 15
     Route: 065
  21. RITUXIMAB [Concomitant]
     Active Substance: RITUXIMAB
     Indication: B-cell type acute leukaemia
     Dosage: DAYS 1, 8, 15, AND 22
     Route: 065
  22. RITUXIMAB [Concomitant]
     Active Substance: RITUXIMAB
     Indication: TP53 gene mutation
  23. POSACONAZOLE [Concomitant]
     Active Substance: POSACONAZOLE
     Indication: Product used for unknown indication
     Dosage: DAYS 1-7
     Route: 065
  24. FLUDARABINE [Concomitant]
     Active Substance: FLUDARABINE PHOSPHATE
     Indication: Stem cell transplant
     Dosage: 30 MG/M2 ? 5 DAYS
     Route: 065
  25. TREOSULFAN [Concomitant]
     Active Substance: TREOSULFAN
     Indication: Stem cell transplant
     Dosage: 14 G/M2 ? 3 DAYS
     Route: 065

REACTIONS (1)
  - Drug ineffective for unapproved indication [Fatal]
